FAERS Safety Report 11519142 (Version 1)
Quarter: 2015Q3

REPORT INFORMATION
  Report Type: Spontaneous
  Country: US (occurrence: US)
  Receive Date: 20150917
  Receipt Date: 20150917
  Transmission Date: 20151125
  Serious: Yes (Other)
  Sender: FDA-Public Use
  Company Number: PHHY2015US111044

PATIENT
  Age: 61 Year
  Sex: Male

DRUGS (1)
  1. NILOTINIB [Suspect]
     Active Substance: NILOTINIB
     Indication: CHRONIC MYELOID LEUKAEMIA
     Dosage: 400 MG, BID
     Route: 065

REACTIONS (9)
  - Rash [Unknown]
  - Scar [Unknown]
  - Alopecia [Unknown]
  - Pruritus [Unknown]
  - Dermatitis allergic [Unknown]
  - Folliculitis [Unknown]
  - Lichenoid keratosis [Unknown]
  - Eyelid folliculitis [Unknown]
  - Drug eruption [Unknown]
